FAERS Safety Report 20344967 (Version 2)
Quarter: 2022Q1

REPORT INFORMATION
  Report Type: Spontaneous
  Country: US (occurrence: US)
  Receive Date: 20220118
  Receipt Date: 20220204
  Transmission Date: 20220423
  Serious: Yes (Other)
  Sender: FDA-Public Use
  Company Number: US-RECORDATI RARE DISEASE INC.-2022000060

PATIENT
  Age: 21 Month
  Sex: Male
  Weight: 12.8 kg

DRUGS (6)
  1. DACTINOMYCIN [Suspect]
     Active Substance: DACTINOMYCIN
     Indication: Embryonal rhabdomyosarcoma
     Dosage: 0.05MG/KG FOR PATIENTS OVER OR EQUAL TO 14 KILOGRAMS (KG) (MAX DOSE 2.5 MG) OR PER DOSING TABLE FOR
     Route: 042
     Dates: start: 20160819
  2. TEMSIROLIMUS [Suspect]
     Active Substance: TEMSIROLIMUS
     Indication: Embryonal rhabdomyosarcoma
     Dosage: UNK, CYCLICAL
     Route: 042
     Dates: start: 20160819
  3. TEMSIROLIMUS [Suspect]
     Active Substance: TEMSIROLIMUS
     Dosage: 15MG/M2 FOR PATIENTS OVER OR EQUAL TO 10 KG (MAX DOSE 25MG) OR 0.5 MG/KG FOR PATIENTS BELOW 10 KG IV
     Route: 065
     Dates: start: 20160901
  4. VINCRISTINE SULFATE [Suspect]
     Active Substance: VINCRISTINE SULFATE
     Indication: Embryonal rhabdomyosarcoma
     Dosage: UNK, CYCLICAL
     Route: 042
     Dates: start: 20160819
  5. CYCLOPHOSPHAMIDE [Suspect]
     Active Substance: CYCLOPHOSPHAMIDE
     Indication: Embryonal rhabdomyosarcoma
     Dosage: UNK, CYCLICAL
     Route: 042
     Dates: start: 20160819
  6. CAMPTOSAR [Suspect]
     Active Substance: IRINOTECAN HYDROCHLORIDE
     Indication: Embryonal rhabdomyosarcoma
     Dosage: UNK, CYCLICAL
     Route: 042

REACTIONS (4)
  - Lymphocyte count decreased [Not Recovered/Not Resolved]
  - Anaemia [Not Recovered/Not Resolved]
  - Hypertriglyceridaemia [Not Recovered/Not Resolved]
  - White blood cell count decreased [Not Recovered/Not Resolved]

NARRATIVE: CASE EVENT DATE: 20160901
